FAERS Safety Report 20086123 (Version 1)
Quarter: 2021Q4

REPORT INFORMATION
  Report Type: Spontaneous
  Country: US (occurrence: US)
  Receive Date: 20211118
  Receipt Date: 20211118
  Transmission Date: 20220303
  Serious: Yes (Hospitalization, Other)
  Sender: FDA-Public Use
  Company Number: US-BAYER-2021A248118

PATIENT
  Age: 23 Year
  Sex: Male

DRUGS (1)
  1. ADEMPAS [Suspect]
     Active Substance: RIOCIGUAT
     Indication: Pulmonary hypertension
     Dosage: 2 MG, TID
     Route: 048
     Dates: start: 20210331

REACTIONS (7)
  - Haemoptysis [None]
  - Nausea [None]
  - Vomiting [None]
  - Dyspnoea exertional [None]
  - Peripheral swelling [Not Recovered/Not Resolved]
  - Pain in extremity [None]
  - Treatment noncompliance [None]

NARRATIVE: CASE EVENT DATE: 20210101
